FAERS Safety Report 20581268 (Version 1)
Quarter: 2022Q1

REPORT INFORMATION
  Report Type: Report from Study
  Country: CA (occurrence: CA)
  Receive Date: 20220311
  Receipt Date: 20220311
  Transmission Date: 20220423
  Serious: Yes (Hospitalization)
  Sender: FDA-Public Use
  Company Number: CA-BAUSCH-BL-2022-006260

PATIENT
  Age: 68 Year
  Sex: Male

DRUGS (37)
  1. DEXAMETHASONE [Suspect]
     Active Substance: DEXAMETHASONE
     Indication: Adverse event
     Route: 048
  2. DEXAMETHASONE [Suspect]
     Active Substance: DEXAMETHASONE
     Route: 048
  3. DEXAMETHASONE [Suspect]
     Active Substance: DEXAMETHASONE
     Indication: Adverse event
     Route: 065
  4. ELOTUZUMAB [Suspect]
     Active Substance: ELOTUZUMAB
     Indication: Product used for unknown indication
     Route: 041
  5. LENALIDOMIDE [Suspect]
     Active Substance: LENALIDOMIDE
     Indication: Product used for unknown indication
     Route: 048
  6. LENALIDOMIDE [Suspect]
     Active Substance: LENALIDOMIDE
     Route: 048
  7. FUCIDIN [Concomitant]
     Active Substance: FUSIDATE SODIUM
     Indication: Adverse event
     Dosage: DURATION 62 (UNSPECIFIED)
  8. PERINDOPRIL ARGININE [Concomitant]
     Active Substance: PERINDOPRIL ARGININE
     Indication: Product used for unknown indication
  9. PERINDOPRIL ARGININE [Concomitant]
     Active Substance: PERINDOPRIL ARGININE
     Dosage: TABLET (ORALLY DISINTEGRATING)
     Route: 048
  10. ASPIRIN [Concomitant]
     Active Substance: ASPIRIN
     Indication: Product used for unknown indication
  11. AZITHROMYCIN [Concomitant]
     Active Substance: AZITHROMYCIN
     Indication: Product used for unknown indication
  12. AZITHROMYCIN [Concomitant]
     Active Substance: AZITHROMYCIN
  13. CEFTRIAXONE [Concomitant]
     Active Substance: CEFTRIAXONE
     Indication: Adverse event
  14. CHADOX1 [Concomitant]
     Indication: Product used for unknown indication
     Dosage: CHADOX1-S-ASTRAZENECA COVID VACCINE
  15. DIPHENHYDRAMINE HYDROCHLORIDE [Concomitant]
     Active Substance: DIPHENHYDRAMINE HYDROCHLORIDE
     Indication: Adverse event
     Route: 048
  16. HYDROMORPHONE [Concomitant]
     Active Substance: HYDROMORPHONE
     Indication: Adverse event
  17. IMODIUM [Concomitant]
     Active Substance: LOPERAMIDE HYDROCHLORIDE
     Indication: Adverse event
  18. IVERMECTIN [Concomitant]
     Active Substance: IVERMECTIN
     Indication: Adverse event
  19. K-DUR [Concomitant]
     Active Substance: POTASSIUM CHLORIDE
     Indication: Product used for unknown indication
  20. K-DUR [Concomitant]
     Active Substance: POTASSIUM CHLORIDE
     Dosage: TABLET (EXTENDED-RELEASE)
  21. K-DUR [Concomitant]
     Active Substance: POTASSIUM CHLORIDE
  22. LASIX [Concomitant]
     Active Substance: FUROSEMIDE
     Indication: Adverse event
  23. LASIX [Concomitant]
     Active Substance: FUROSEMIDE
  24. LASIX [Concomitant]
     Active Substance: FUROSEMIDE
  25. MAGNESIUM SULFATE [Concomitant]
     Active Substance: MAGNESIUM SULFATE
     Indication: Product used for unknown indication
  26. MOXIFLOXACIN [Concomitant]
     Active Substance: MOXIFLOXACIN
     Indication: Adverse event
  27. MOXIFLOXACIN [Concomitant]
     Active Substance: MOXIFLOXACIN
  28. MOXIFLOXACIN [Concomitant]
     Active Substance: MOXIFLOXACIN
  29. OXYGEN [Concomitant]
     Active Substance: OXYGEN
     Indication: Adverse event
     Route: 065
  30. PANTOPRAZOLE [Concomitant]
     Active Substance: PANTOPRAZOLE
     Indication: Product used for unknown indication
  31. PERCOCET [Concomitant]
     Active Substance: ACETAMINOPHEN\OXYCODONE HYDROCHLORIDE
     Indication: Adverse event
  32. PERINDOPRIL [Concomitant]
     Active Substance: PERINDOPRIL
     Indication: Product used for unknown indication
  33. PIPERACILLIN SODIUM [Concomitant]
     Active Substance: PIPERACILLIN SODIUM
     Indication: Adverse event
  34. PIPERACILLIN SODIUM [Concomitant]
     Active Substance: PIPERACILLIN SODIUM
  35. REMDESIVIR [Concomitant]
     Active Substance: REMDESIVIR
     Indication: Adverse event
  36. TINZAPARIN [Concomitant]
     Active Substance: TINZAPARIN
     Indication: Product used for unknown indication
  37. VENTOLIN [Concomitant]
     Active Substance: ALBUTEROL SULFATE
     Indication: Adverse event

REACTIONS (1)
  - Upper gastrointestinal haemorrhage [Recovered/Resolved]
